FAERS Safety Report 8282130-X (Version None)
Quarter: 2012Q2

REPORT INFORMATION
  Report Type: 
  Country: None (occurrence: None)
  Receive Date: 20120413
  Receipt Date: 20120403
  Transmission Date: 20120825
  Serious: Yes (Life-Threatening, Hospitalization, Other)
  Sender: FDA-Public Use
  Company Number: FR-BRISTOL-MYERS SQUIBB COMPANY-16310567

PATIENT
  Age: 46 Year
  Sex: Male

DRUGS (8)
  1. OMEPRAZOLE [Concomitant]
  2. MYAMBUTOL [Suspect]
     Indication: TUBERCULOSIS
     Dates: start: 20030701
  3. ACETAMINOPHEN [Concomitant]
  4. BACTRIM DS [Concomitant]
  5. EPIVIR [Suspect]
     Indication: HIV INFECTION
     Dates: start: 20030701
  6. RIFADIN [Suspect]
     Indication: TUBERCULOSIS
     Dates: start: 20030701
  7. RIMIFON [Suspect]
     Indication: TUBERCULOSIS
     Dosage: 2.5MG/D
     Dates: start: 20030701
  8. ZERIT [Suspect]
     Indication: HIV INFECTION
     Route: 048
     Dates: start: 20030701

REACTIONS (2)
  - HEPATITIS FULMINANT [None]
  - CONVULSION [None]
